FAERS Safety Report 8023464-3 (Version None)
Quarter: 2012Q1

REPORT INFORMATION
  Report Type: 
  Country: None (occurrence: None)
  Receive Date: 20120105
  Receipt Date: 20111228
  Transmission Date: 20120608
  Serious: Yes (Hospitalization)
  Sender: FDA-Public Use
  Company Number: US-BIOGENIDEC-2011BI045195

PATIENT
  Age: 54 Year
  Sex: Female

DRUGS (1)
  1. AVONEX [Suspect]
     Indication: MULTIPLE SCLEROSIS
     Route: 030
     Dates: start: 20110405

REACTIONS (6)
  - FALL [None]
  - SUTURE INSERTION [None]
  - DIZZINESS [None]
  - FACIAL BONES FRACTURE [None]
  - MOBILITY DECREASED [None]
  - DRUG DOSE OMISSION [None]
